FAERS Safety Report 21000260 (Version 3)
Quarter: 2022Q4

REPORT INFORMATION
  Report Type: Spontaneous
  Country: US (occurrence: US)
  Receive Date: 20220623
  Receipt Date: 20221025
  Transmission Date: 20230113
  Serious: Yes (Hospitalization)
  Sender: FDA-Public Use
  Company Number: US-BRISTOL-MYERS SQUIBB COMPANY-2022-058468

PATIENT
  Age: 58 Year
  Sex: Male
  Weight: 83 kg

DRUGS (1)
  1. REVLIMID [Suspect]
     Active Substance: LENALIDOMIDE
     Indication: Plasma cell myeloma
     Dosage: DAILY*21 DAYS, EVERY 28 DAYS?LOT NUMBER: A3639A, EXPIRATION DATE: 30-APR-2024
     Route: 048
     Dates: start: 20220321

REACTIONS (5)
  - Hospitalisation [Not Recovered/Not Resolved]
  - Seasonal allergy [Recovering/Resolving]
  - Laboratory test abnormal [Unknown]
  - Fatigue [Recovered/Resolved]
  - Sinusitis [Recovered/Resolved]

NARRATIVE: CASE EVENT DATE: 20220610
